FAERS Safety Report 9138646 (Version 1)
Quarter: 2013Q1

REPORT INFORMATION
  Report Type: Spontaneous
  Country: US (occurrence: US)
  Receive Date: 20130305
  Receipt Date: 20130305
  Transmission Date: 20140127
  Serious: No
  Sender: FDA-Public Use
  Company Number: US-BAYER-2013-027441

PATIENT
  Sex: Male

DRUGS (1)
  1. ALEVE CAPLET/TABLET,MIDOL EXTENDED RELIEF CAPLET [Suspect]
     Indication: TOOTHACHE
     Dosage: 2 DF, EVERY 12 HOURS
     Route: 048
     Dates: start: 20130221

REACTIONS (1)
  - Vision blurred [Not Recovered/Not Resolved]
